FAERS Safety Report 5289015-1 (Version None)
Quarter: 2007Q2

REPORT INFORMATION
  Report Type: 
  Country: None (occurrence: None)
  Receive Date: 20070405
  Receipt Date: 20070326
  Transmission Date: 20071010
  Serious: Yes (Other)
  Sender: FDA-Public Use
  Company Number: JP-PFIZER INC-2007024485

PATIENT
  Age: 32 Year
  Sex: Male
  Weight: 65 kg

DRUGS (4)
  1. ZITHROMAC [Suspect]
     Indication: INFLUENZA
     Route: 048
     Dates: start: 20070322, end: 20070322
  2. DASEN [Concomitant]
     Route: 048
  3. TOCLASE [Concomitant]
     Route: 048
     Dates: start: 20070322
  4. CALONAL [Concomitant]
     Route: 048

REACTIONS (1)
  - ENTEROCOLITIS HAEMORRHAGIC [None]
